FAERS Safety Report 7328337 (Version 3)
Quarter: 2012Q4

REPORT INFORMATION
  Report Type: 
  Country: US (occurrence: US)
  Receive Date: 20100323
  Receipt Date: 20120918
  Transmission Date: 20130627
  Serious: Yes (Hospitalization)
  Sender: FDA-Public Use
  Company Number: US-BAYER-201017040NA

PATIENT
  Age: 40 Year
  Sex: Female
  Weight: 68.03 kg

DRUGS (6)
  1. YAZ [Suspect]
     Indication: CONTRACEPTION
     Route: 048
     Dates: start: 2006, end: 20080404
  2. YAZ [Suspect]
     Indication: PREMENSTRUAL SYNDROME
  3. YAZ [Suspect]
     Indication: PREMENSTRUAL SYNDROME
  4. ESTROSTEP [Concomitant]
     Dosage: 2005
     Route: 065
  5. SARAFEM [Concomitant]
     Route: 065
  6. XANAX [Concomitant]
     Route: 065

REACTIONS (8)
  - Transient ischaemic attack [Recovering/Resolving]
  - Lacunar infarction [Recovering/Resolving]
  - Migraine [Recovering/Resolving]
  - Headache [Recovering/Resolving]
  - Hemiparesis [Recovering/Resolving]
  - VIIth nerve paralysis [Recovering/Resolving]
  - Mental disorder [Unknown]
  - Mental disorder [Unknown]
